FAERS Safety Report 7232388-0 (Version None)
Quarter: 2011Q1

REPORT INFORMATION
  Report Type: 
  Country: None (occurrence: None)
  Receive Date: 20110107
  Receipt Date: 20101229
  Transmission Date: 20110831
  Serious: Yes (Other)
  Sender: FDA-Public Use
  Company Number: 2010US004814

PATIENT
  Age: 67 Year
  Sex: Male

DRUGS (6)
  1. AMBISOME [Suspect]
     Indication: POLYNEUROPATHY
     Dosage: 100 MG, UID/QD, IV NOS ; 300 MG, UID/QD, IV NOS ; 600 MG, UID/QD, IV NOS
     Route: 042
     Dates: start: 20101022, end: 20101101
  2. AMBISOME [Suspect]
     Indication: ZYGOMYCOSIS
     Dosage: 100 MG, UID/QD, IV NOS ; 300 MG, UID/QD, IV NOS ; 600 MG, UID/QD, IV NOS
     Route: 042
     Dates: start: 20101022, end: 20101101
  3. AMBISOME [Suspect]
     Indication: POLYNEUROPATHY
     Dosage: 100 MG, UID/QD, IV NOS ; 300 MG, UID/QD, IV NOS ; 600 MG, UID/QD, IV NOS
     Route: 042
     Dates: start: 20101013, end: 20101020
  4. AMBISOME [Suspect]
     Indication: ZYGOMYCOSIS
     Dosage: 100 MG, UID/QD, IV NOS ; 300 MG, UID/QD, IV NOS ; 600 MG, UID/QD, IV NOS
     Route: 042
     Dates: start: 20101013, end: 20101020
  5. AMBISOME [Suspect]
     Indication: POLYNEUROPATHY
     Dosage: 100 MG, UID/QD, IV NOS ; 300 MG, UID/QD, IV NOS ; 600 MG, UID/QD, IV NOS
     Route: 042
     Dates: start: 20101102
  6. AMBISOME [Suspect]
     Indication: ZYGOMYCOSIS
     Dosage: 100 MG, UID/QD, IV NOS ; 300 MG, UID/QD, IV NOS ; 600 MG, UID/QD, IV NOS
     Route: 042
     Dates: start: 20101102

REACTIONS (1)
  - NEUROPATHY PERIPHERAL [None]
